FAERS Safety Report 13891451 (Version 1)
Quarter: 2017Q3

REPORT INFORMATION
  Report Type: Spontaneous
  Country: AR (occurrence: AR)
  Receive Date: 20170822
  Receipt Date: 20170822
  Transmission Date: 20171127
  Serious: Yes (Death)
  Sender: FDA-Public Use
  Company Number: AR-PFIZER INC-2017360661

PATIENT
  Age: 67 Year
  Sex: Female

DRUGS (1)
  1. IBRANCE [Suspect]
     Active Substance: PALBOCICLIB
     Indication: BREAST CANCER METASTATIC
     Dosage: 125 MG, CYCLIC (3/1 SCHEME)
     Dates: start: 20161208, end: 201706

REACTIONS (5)
  - Emotional distress [Unknown]
  - Epistaxis [Unknown]
  - Gastric disorder [Unknown]
  - Death [Fatal]
  - Food intolerance [Unknown]

NARRATIVE: CASE EVENT DATE: 201707
